FAERS Safety Report 4470459-2 (Version None)
Quarter: 2004Q4

REPORT INFORMATION
  Report Type: 
  Country: None (occurrence: None)
  Receive Date: 20041005
  Receipt Date: 20041005
  Transmission Date: 20050328
  Serious: Yes (Death)
  Sender: FDA-Public Use
  Company Number: None

PATIENT
  Sex: Female
  Weight: 61.2356 kg

DRUGS (4)
  1. GEODON [Suspect]
     Indication: SCHIZOPHRENIA
     Dosage: 20 MG IM, 20 MG PO
     Route: 030
     Dates: start: 20040906, end: 20040912
  2. GEODON [Suspect]
     Indication: SCHIZOPHRENIA
     Dosage: 20 MG IM, 20 MG PO
     Route: 030
     Dates: start: 20040906, end: 20040912
  3. SEROQUEL [Suspect]
  4. HALDOL [Concomitant]

REACTIONS (3)
  - CARDIO-RESPIRATORY ARREST [None]
  - CIRCULATORY COLLAPSE [None]
  - HEART RATE INCREASED [None]
